FAERS Safety Report 8244595-9 (Version None)
Quarter: 2012Q1

REPORT INFORMATION
  Report Type: 
  Country: None (occurrence: None)
  Receive Date: 20120329
  Receipt Date: 20120320
  Transmission Date: 20120608
  Serious: Yes (Hospitalization, Other)
  Sender: FDA-Public Use
  Company Number: US-NAPPMUNDI-USA-2012-0083265

PATIENT
  Sex: Male

DRUGS (1)
  1. OXYCONTIN [Suspect]
     Indication: DRUG ABUSE

REACTIONS (6)
  - DRUG DEPENDENCE [None]
  - CHILLS [None]
  - OVERDOSE [None]
  - VOMITING [None]
  - DRUG ABUSE [None]
  - SUICIDAL IDEATION [None]
